FAERS Safety Report 8027808-8 (Version None)
Quarter: 2012Q1

REPORT INFORMATION
  Report Type: 
  Country: None (occurrence: None)
  Receive Date: 20120104
  Receipt Date: 20111212
  Transmission Date: 20120608
  Serious: Yes (Other)
  Sender: FDA-Public Use
  Company Number: JPI-P-018742

PATIENT
  Age: 66 Year
  Sex: Female
  Weight: 113.3993 kg

DRUGS (11)
  1. RAMIPRIL [Concomitant]
  2. PIOGLITAZONE [Concomitant]
  3. LEVOTHYROXINE SODIUM [Concomitant]
  4. ASPIRIN [Concomitant]
  5. XYREM [Suspect]
     Indication: CATAPLEXY
     Dosage: 3 GM (1.5 GM, 2 IN 1 D), ORAL, ORAL, 9GM (4.5 GM, 2 IN 1 D), ORAL
     Route: 048
     Dates: start: 20110503
  6. XYREM [Suspect]
     Indication: CATAPLEXY
     Dosage: 3 GM (1.5 GM, 2 IN 1 D), ORAL, ORAL, 9GM (4.5 GM, 2 IN 1 D), ORAL
     Route: 048
     Dates: start: 20100506
  7. VENLAFAXINE [Concomitant]
  8. GLIMEPIRIDE [Concomitant]
  9. COLESEVELAM HYDROCHLORIDE [Concomitant]
  10. MODAFINIL [Concomitant]
  11. PROPRANOLOL [Concomitant]

REACTIONS (1)
  - HEPATIC CIRRHOSIS [None]
